FAERS Safety Report 7110255-0 (Version None)
Quarter: 2010Q4

REPORT INFORMATION
  Report Type: 
  Country: None (occurrence: None)
  Receive Date: 20101118
  Receipt Date: 20101108
  Transmission Date: 20110411
  Serious: Yes (Hospitalization)
  Sender: FDA-Public Use
  Company Number: US-JNJFOC-20101003346

PATIENT
  Sex: Female
  Weight: 81.65 kg

DRUGS (6)
  1. REMICADE [Suspect]
     Indication: PSORIASIS
     Route: 042
  2. CRESTOR [Concomitant]
     Indication: BLOOD CHOLESTEROL
     Route: 048
  3. PRILOSEC [Concomitant]
     Route: 048
  4. CLARITIN [Concomitant]
     Indication: HYPERSENSITIVITY
  5. FOSAMAX [Concomitant]
     Indication: MINERAL SUPPLEMENTATION
     Route: 048
  6. CELEXA [Concomitant]
     Indication: DEPRESSION
     Route: 048

REACTIONS (1)
  - ADVERSE DRUG REACTION [None]
